FAERS Safety Report 5994381-5 (Version None)
Quarter: 2008Q4

REPORT INFORMATION
  Report Type: 
  Country: None (occurrence: None)
  Receive Date: 20081212
  Receipt Date: 20080906
  Transmission Date: 20090506
  Serious: No
  Sender: FDA-Public Use
  Company Number: US-ABBOTT-08P-163-0475154-00

PATIENT
  Sex: Female
  Weight: 55.388 kg

DRUGS (7)
  1. HUMIRA [Suspect]
     Indication: RHEUMATOID ARTHRITIS
     Route: 058
     Dates: start: 20080831
  2. METHOTREXATE [Suspect]
     Indication: RHEUMATOID ARTHRITIS
     Route: 050
  3. NAPROXEN SODIUM [Concomitant]
     Indication: PAIN
     Route: 048
  4. CYCLOBENZAPRINE HCL [Concomitant]
     Indication: PAIN
     Route: 048
  5. SUMATRIPTAN [Concomitant]
     Indication: PAIN
     Route: 048
  6. VITAMIN E [Concomitant]
     Indication: VITAMIN SUPPLEMENTATION
     Route: 048
  7. FOLIC ACID [Concomitant]
     Indication: VITAMIN SUPPLEMENTATION
     Route: 048

REACTIONS (1)
  - ERYTHEMA NODOSUM [None]
